FAERS Safety Report 20299375 (Version 11)
Quarter: 2025Q4

REPORT INFORMATION
  Report Type: Spontaneous
  Country: US (occurrence: US)
  Receive Date: 20220105
  Receipt Date: 20251001
  Transmission Date: 20260117
  Serious: No
  Sender: PFIZER
  Company Number: US-PFIZER INC-2021555624

PATIENT
  Age: 78 Year
  Sex: Female
  Weight: 52.245 kg

DRUGS (3)
  1. IBRANCE [Interacting]
     Active Substance: PALBOCICLIB
     Indication: Breast cancer female
     Dosage: 125 MG, CYCLIC (TAKE ONE (1) TABLET BY MOUTH ONCE DAILY 21 DAYS ON, THEN 7 DAYS OFF)
     Route: 048
     Dates: start: 20170212
  2. PANTOPRAZOLE [Interacting]
     Active Substance: PANTOPRAZOLE
     Dosage: UNK
  3. ELIQUIS [Concomitant]
     Active Substance: APIXABAN
     Dosage: UNK

REACTIONS (5)
  - Asthenia [Recovering/Resolving]
  - Platelet count decreased [Recovered/Resolved]
  - Mobility decreased [Recovering/Resolving]
  - Cough [Unknown]
  - Drug interaction [Unknown]

NARRATIVE: CASE EVENT DATE: 20241001
